FAERS Safety Report 25192379 (Version 1)
Quarter: 2025Q2

REPORT INFORMATION
  Report Type: Other
  Country: CN (occurrence: CN)
  Receive Date: 20250414
  Receipt Date: 20250414
  Transmission Date: 20250716
  Serious: Yes (Life-Threatening, Other)
  Sender: LYNE LABORATORIES
  Company Number: CN-Lyne Laboratories Inc.-2174813

PATIENT
  Age: 59 Year
  Sex: Female

DRUGS (10)
  1. DEXAMETHASONE [Suspect]
     Active Substance: DEXAMETHASONE
     Indication: Plasma cell myeloma
     Dates: start: 2023, end: 2023
  2. DEXAMETHASONE [Suspect]
     Active Substance: DEXAMETHASONE
     Indication: Plasma cell myeloma
  3. BORTEZOMIB [Suspect]
     Active Substance: BORTEZOMIB
     Dates: start: 2023, end: 2023
  4. ZOLEDRONIC ACID [Concomitant]
     Active Substance: ZOLEDRONIC ACID
  5. CALCIUM CARBONATE [Concomitant]
     Active Substance: CALCIUM CARBONATE
  6. ASPIRIN [Concomitant]
     Active Substance: ASPIRIN
  7. ETOPOSIDE [Suspect]
     Active Substance: ETOPOSIDE
  8. MITOXANTRONE HYDROCHLORIDE [Suspect]
     Active Substance: MITOXANTRONE HYDROCHLORIDE
  9. TUCIDINOSTAT [Suspect]
     Active Substance: TUCIDINOSTAT
  10. LENALIDOMIDE [Suspect]
     Active Substance: LENALIDOMIDE
     Dates: start: 2023, end: 2023

REACTIONS (4)
  - Myelosuppression [Recovered/Resolved]
  - Product use in unapproved indication [Unknown]
  - Haematotoxicity [Recovered/Resolved]
  - Febrile neutropenia [Recovered/Resolved]
